FAERS Safety Report 6583031-5 (Version None)
Quarter: 2010Q1

REPORT INFORMATION
  Report Type: 
  Country: None (occurrence: None)
  Receive Date: 20100216
  Receipt Date: 20100202
  Transmission Date: 20100710
  Serious: Yes (Hospitalization, Other)
  Sender: FDA-Public Use
  Company Number: US-ROCHE-669770

PATIENT
  Sex: Male
  Weight: 83 kg

DRUGS (17)
  1. MYCOPHENOLATE MOFETIL [Suspect]
     Route: 048
     Dates: start: 20081110, end: 20081110
  2. MYCOPHENOLATE MOFETIL [Suspect]
     Dosage: TEMP. INTERRUPT
     Route: 048
     Dates: start: 20081111, end: 20090414
  3. MYCOPHENOLATE MOFETIL [Suspect]
     Route: 048
     Dates: start: 20090415, end: 20090508
  4. MYCOPHENOLATE MOFETIL [Suspect]
     Route: 048
  5. CP-690550 [Suspect]
     Route: 048
     Dates: start: 20081111
  6. PROTONIX [Concomitant]
     Dates: start: 20081111
  7. PROTONIX [Concomitant]
     Dates: start: 20081124
  8. CALCITRIOL [Concomitant]
     Dates: start: 20081119
  9. ALBUTEROL [Concomitant]
     Dates: start: 20081111
  10. OS-CAL D [Concomitant]
     Dates: start: 20081119
  11. NORVASC [Concomitant]
     Dates: start: 20081116
  12. OMEGA [Concomitant]
     Dosage: NAME ^OMEGA-3^
     Dates: start: 20091119
  13. VALCYTE [Concomitant]
     Dates: start: 20081111
  14. LABETALOL HCL [Concomitant]
     Dates: start: 20081111
  15. LISINOPRIL [Concomitant]
     Dates: start: 20090309, end: 20090101
  16. DRISDOL [Concomitant]
     Dates: start: 20090320
  17. ACETYLSALICYLIC ACID [Concomitant]
     Dates: start: 20081115

REACTIONS (4)
  - CYTOMEGALOVIRUS OESOPHAGITIS [None]
  - CYTOMEGALOVIRUS VIRAEMIA [None]
  - LEUKOPENIA [None]
  - TRANSPLANT REJECTION [None]
